FAERS Safety Report 10097383 (Version 2)
Quarter: 2014Q2

REPORT INFORMATION
  Report Type: Spontaneous
  Country: HK (occurrence: HK)
  Receive Date: 20140423
  Receipt Date: 20140429
  Transmission Date: 20141212
  Serious: Yes (Other)
  Sender: FDA-Public Use
  Company Number: HK-ROCHE-1384236

PATIENT
  Age: 6 Year
  Sex: Male

DRUGS (1)
  1. TAMIFLU [Suspect]
     Indication: INFLUENZA
     Dosage: RECEIVED 3 DOSES
     Route: 048
     Dates: start: 201404, end: 201404

REACTIONS (1)
  - Depression [Not Recovered/Not Resolved]
